FAERS Safety Report 4278850-4 (Version None)
Quarter: 2004Q1

REPORT INFORMATION
  Report Type: 
  Country: None (occurrence: None)
  Receive Date: 20040122
  Receipt Date: 20040112
  Transmission Date: 20041129
  Serious: Yes (Disabling)
  Sender: FDA-Public Use
  Company Number: 2004UW00486

PATIENT
  Age: 56 Year
  Sex: Female
  Weight: 54.8852 kg

DRUGS (7)
  1. RHINOCORT [Suspect]
     Indication: NASAL CONGESTION
  2. NASONEX [Concomitant]
  3. COMBIVENT [Concomitant]
  4. ADVAIR DISKUS 100/50 [Concomitant]
  5. ATROVENT [Concomitant]
  6. ASTELIN [Concomitant]
  7. BENTYL [Concomitant]

REACTIONS (3)
  - ASTHMA [None]
  - ATTENTION DEFICIT/HYPERACTIVITY DISORDER [None]
  - COGNITIVE DISORDER [None]
